FAERS Safety Report 4708294-X (Version None)
Quarter: 2005Q2

REPORT INFORMATION
  Report Type: 
  Country: None (occurrence: None)
  Receive Date: 20050628
  Receipt Date: 20040917
  Transmission Date: 20051028
  Serious: Yes (Other)
  Sender: FDA-Public Use
  Company Number: 2005BH000366

PATIENT
  Sex: Male

DRUGS (1)
  1. HEMOFIL [Suspect]
     Indication: HAEMOPHILIA

REACTIONS (2)
  - HEPATITIS B [None]
  - HEPATITIS C [None]
